FAERS Safety Report 6301134-7 (Version None)
Quarter: 2009Q3

REPORT INFORMATION
  Report Type: 
  Country: None (occurrence: None)
  Receive Date: 20090807
  Receipt Date: 20090727
  Transmission Date: 20100115
  Serious: Yes (Other)
  Sender: FDA-Public Use
  Company Number: MY-PFIZER INC-2009246832

PATIENT
  Age: 32 Year

DRUGS (1)
  1. DILANTIN [Suspect]
     Dosage: 100 MG, 3X/DAY
     Route: 048
     Dates: start: 20090618, end: 20090626

REACTIONS (5)
  - GENERALISED OEDEMA [None]
  - HEPATOTOXICITY [None]
  - PYREXIA [None]
  - RASH [None]
  - WHITE BLOOD CELL COUNT ABNORMAL [None]
